FAERS Safety Report 18509896 (Version 2)
Quarter: 2020Q4

REPORT INFORMATION
  Report Type: Spontaneous
  Country: US (occurrence: US)
  Receive Date: 20201117
  Receipt Date: 20201216
  Transmission Date: 20210114
  Serious: Yes (Hospitalization, Other)
  Sender: FDA-Public Use
  Company Number: US-SA-2020SA322020

PATIENT

DRUGS (2)
  1. TOPIRAMATE. [Suspect]
     Active Substance: TOPIRAMATE
  2. DUPIXENT [Suspect]
     Active Substance: DUPILUMAB
     Indication: DERMATITIS ATOPIC
     Dosage: 300 MG, QOW
     Route: 058

REACTIONS (10)
  - Bipolar disorder [Unknown]
  - Fatigue [Unknown]
  - Suicide attempt [Unknown]
  - Mania [Unknown]
  - Overdose [Unknown]
  - Depression [Unknown]
  - Dermatitis contact [Not Recovered/Not Resolved]
  - Sciatica [Unknown]
  - Condition aggravated [Not Recovered/Not Resolved]
  - Vein rupture [Recovered/Resolved]

NARRATIVE: CASE EVENT DATE: 2020
